FAERS Safety Report 7718915-5 (Version None)
Quarter: 2011Q3

REPORT INFORMATION
  Report Type: 
  Country: None (occurrence: None)
  Receive Date: 20110830
  Receipt Date: 20110829
  Transmission Date: 20111222
  Serious: Yes (Hospitalization)
  Sender: FDA-Public Use
  Company Number: US-SANOFI-AVENTIS-2011SA055227

PATIENT
  Age: 77 Year
  Sex: Female
  Weight: 81.8 kg

DRUGS (10)
  1. PLAVIX [Suspect]
     Route: 048
  2. CYMBALTA [Concomitant]
  3. PERCOCET [Concomitant]
     Indication: PAIN
  4. ASPIRIN [Concomitant]
  5. MORPHINE [Concomitant]
     Indication: SLEEP DISORDER
  6. LYRICA [Concomitant]
     Indication: FIBROMYALGIA
  7. ESOMEPRAZOLE SODIUM [Concomitant]
  8. ANASTROZOLE [Concomitant]
     Indication: BREAST CANCER
  9. MELOXICAM [Concomitant]
     Indication: ARTHRITIS
  10. ANTIHYPERTENSIVES [Concomitant]

REACTIONS (10)
  - TENDONITIS [None]
  - LYMPHOEDEMA [None]
  - CONTUSION [None]
  - MYOCARDIAL INFARCTION [None]
  - NAUSEA [None]
  - OEDEMA PERIPHERAL [None]
  - CARDIAC FAILURE CONGESTIVE [None]
  - VOMITING [None]
  - PNEUMONIA [None]
  - PAIN IN EXTREMITY [None]
